FAERS Safety Report 23213858 (Version 1)
Quarter: 2023Q4

REPORT INFORMATION
  Report Type: Report from Study
  Country: US (occurrence: US)
  Receive Date: 20231121
  Receipt Date: 20231121
  Transmission Date: 20240110
  Serious: Yes (Hospitalization)
  Sender: FDA-Public Use
  Company Number: US-MYLANLABS-2023M1122006

PATIENT
  Age: 14 Year
  Sex: Female

DRUGS (4)
  1. ESTRADIOL [Suspect]
     Active Substance: ESTRADIOL
     Indication: Oestrogen therapy
     Dosage: 75 MICROGRAM
     Route: 062
  2. ESTRADIOL [Suspect]
     Active Substance: ESTRADIOL
     Dosage: UNK (FREQUENCY OF ESTRADIOL CYCLING WAS INCREASED)
     Route: 062
  3. PROGESTERONE [Concomitant]
     Active Substance: PROGESTERONE
     Indication: Hormone therapy
     Dosage: 200 MILLIGRAM, MONTHLY (MICRONISED)
     Route: 065
  4. PROGESTERONE [Concomitant]
     Active Substance: PROGESTERONE
     Dosage: UNK (LENGTHENED DURATION OF PROGESTERONE SUPPLEMENTATION)
     Route: 065

REACTIONS (3)
  - Abnormal uterine bleeding [Recovered/Resolved]
  - Anaemia [Unknown]
  - Off label use [Unknown]
